FAERS Safety Report 13672728 (Version 1)
Quarter: 2017Q2

REPORT INFORMATION
  Report Type: Spontaneous
  Country: US (occurrence: US)
  Receive Date: 20170621
  Receipt Date: 20170621
  Transmission Date: 20170830
  Serious: No
  Sender: FDA-Public Use
  Company Number: US-CROWN LABORATORIES, INC.-2022327

PATIENT
  Age: 58 Year
  Sex: Female
  Weight: 54.55 kg

DRUGS (1)
  1. BLUE LIZARD FACE [Suspect]
     Active Substance: OCTINOXATE\ZINC OXIDE
     Indication: PROPHYLAXIS AGAINST SOLAR RADIATION
     Route: 061
     Dates: start: 201705, end: 201705

REACTIONS (1)
  - Application site exfoliation [Recovered/Resolved]
